FAERS Safety Report 5873795-8 (Version None)
Quarter: 2008Q3

REPORT INFORMATION
  Report Type: 
  Country: None (occurrence: None)
  Receive Date: 20080903
  Receipt Date: 20080903
  Transmission Date: 20090109
  Serious: Yes (Other)
  Sender: FDA-Public Use
  Company Number: None

PATIENT
  Sex: Female
  Weight: 79.8331 kg

DRUGS (2)
  1. LEVAQUIN [Suspect]
     Indication: DIVERTICULITIS
     Dosage: 1 TABLET DAILY PO
     Route: 048
     Dates: start: 20080814, end: 20080818
  2. LEVAQUIN [Suspect]
     Dosage: IV IN HOSPITAL IV
     Route: 042
     Dates: start: 20080813, end: 20080814

REACTIONS (17)
  - BALANCE DISORDER [None]
  - CONFUSIONAL STATE [None]
  - DEHYDRATION [None]
  - DIARRHOEA [None]
  - ERYTHEMA [None]
  - FLATULENCE [None]
  - GAIT DISTURBANCE [None]
  - HEADACHE [None]
  - INSOMNIA [None]
  - MUSCULOSKELETAL STIFFNESS [None]
  - NAUSEA [None]
  - NON-CARDIAC CHEST PAIN [None]
  - OEDEMA PERIPHERAL [None]
  - PAIN IN EXTREMITY [None]
  - POOR VENOUS ACCESS [None]
  - SPEECH DISORDER [None]
  - THINKING ABNORMAL [None]
